FAERS Safety Report 6168650-2 (Version None)
Quarter: 2009Q2

REPORT INFORMATION
  Report Type: 
  Country: None (occurrence: None)
  Receive Date: 20090423
  Receipt Date: 20090413
  Transmission Date: 20091009
  Serious: Yes (Hospitalization)
  Sender: FDA-Public Use
  Company Number: CFNP-392

PATIENT
  Age: 1 Year
  Sex: Female

DRUGS (7)
  1. MEIACT MS FINE GRANULES (CEFDITOREN PIVOXIL) [Suspect]
     Indication: OTITIS MEDIA
     Dosage: 81 MG ORALLY
     Route: 048
  2. MEIACT MS FINE GRANULES (CEFDITOREN PIVOXIL) [Suspect]
     Indication: OTITIS MEDIA
     Dosage: 81 MG ORALLY
     Route: 048
  3. ANTIBIOTICS-RESISTANT LACTIC ACID BACTERIAE [Concomitant]
  4. L-CARBOCISTEINE [Concomitant]
  5. AMBROXOL HYDROCHLORIDE [Concomitant]
  6. PROCATEROL HYDROCHLORIDE HYDRATE [Concomitant]
  7. CYPROHEPTADINE HYDROCHLORIDE [Concomitant]

REACTIONS (5)
  - CARNITINE DECREASED [None]
  - DISEASE RECURRENCE [None]
  - HYPOGLYCAEMIA [None]
  - OTITIS MEDIA ACUTE [None]
  - UNRESPONSIVE TO STIMULI [None]
